FAERS Safety Report 5639980-5 (Version None)
Quarter: 2008Q1

REPORT INFORMATION
  Report Type: 
  Country: None (occurrence: None)
  Receive Date: 20080227
  Receipt Date: 20080204
  Transmission Date: 20080703
  Serious: No
  Sender: FDA-Public Use
  Company Number: US-BAYER-200813007NA

PATIENT
  Age: 27 Year
  Sex: Female
  Weight: 51 kg

DRUGS (2)
  1. YASMIN [Suspect]
     Indication: CONTRACEPTION
  2. IMITREX [Concomitant]
     Indication: MIGRAINE

REACTIONS (2)
  - POLYMENORRHOEA [None]
  - PREGNANCY ON ORAL CONTRACEPTIVE [None]
